FAERS Safety Report 6554600-3 (Version None)
Quarter: 2010Q1

REPORT INFORMATION
  Report Type: 
  Country: None (occurrence: None)
  Receive Date: 20100127
  Receipt Date: 20100115
  Transmission Date: 20100710
  Serious: Yes (Hospitalization)
  Sender: FDA-Public Use
  Company Number: FR-GENENTECH-297158

PATIENT
  Sex: Female

DRUGS (12)
  1. RITUXIMAB [Suspect]
     Indication: B-CELL LYMPHOMA
     Dosage: 785 MG, QD
     Route: 041
     Dates: start: 20080807, end: 20080807
  2. RITUXIMAB [Suspect]
     Dosage: 785 MG, QAM
     Route: 041
     Dates: start: 20080902, end: 20080902
  3. RITUXIMAB [Suspect]
     Dosage: 785 MG, QAM
     Route: 041
     Dates: start: 20080929, end: 20080929
  4. RITUXIMAB [Suspect]
     Dosage: 785 MG, QAM
     Route: 041
     Dates: start: 20081027, end: 20081027
  5. CYCLOPHOSPHAMIDE [Suspect]
     Indication: CHRONIC LYMPHOCYTIC LEUKAEMIA
     Dosage: 1179 MG, QD
     Route: 048
     Dates: start: 20080929, end: 20081001
  6. CYCLOPHOSPHAMIDE [Suspect]
     Dosage: 300 MG, QAM
     Route: 048
     Dates: start: 20081027, end: 20081029
  7. FLUDARABINE PHOSPHATE [Suspect]
     Indication: CHRONIC LYMPHOCYTIC LEUKAEMIA
     Dosage: 180 MG, QD
     Route: 048
     Dates: start: 20080929, end: 20081001
  8. FLUDARABINE PHOSPHATE [Suspect]
     Dosage: 50 MG, QAM
     Route: 048
     Dates: start: 20081027, end: 20081029
  9. ZELITREX [Concomitant]
     Indication: DRUG USE FOR UNKNOWN INDICATION
     Dosage: 500 MG, BID
     Route: 002
  10. LASILIX [Concomitant]
     Indication: DRUG USE FOR UNKNOWN INDICATION
     Dosage: 40 MG, UNK
  11. LERCAN [Concomitant]
     Indication: DRUG USE FOR UNKNOWN INDICATION
     Dosage: 10 MG, QAM
  12. PENTACARINAT [Concomitant]
     Indication: DRUG USE FOR UNKNOWN INDICATION
     Dosage: UNK

REACTIONS (1)
  - SARCOIDOSIS [None]
